FAERS Safety Report 7926276-1 (Version None)
Quarter: 2011Q4

REPORT INFORMATION
  Report Type: 
  Country: None (occurrence: None)
  Receive Date: 20111118
  Receipt Date: 20111109
  Transmission Date: 20120403
  Serious: Yes (Hospitalization)
  Sender: FDA-Public Use
  Company Number: US-BIOGENIDEC-2011BI042769

PATIENT
  Sex: Female

DRUGS (1)
  1. AVONEX [Suspect]
     Indication: MULTIPLE SCLEROSIS
     Route: 030
     Dates: start: 20040422

REACTIONS (5)
  - LIMB INJURY [None]
  - STAPHYLOCOCCAL INFECTION [None]
  - MEMORY IMPAIRMENT [None]
  - FALL [None]
  - ARTHRITIS [None]
